FAERS Safety Report 25048715 (Version 2)
Quarter: 2025Q1

REPORT INFORMATION
  Report Type: Spontaneous
  Country: US (occurrence: US)
  Receive Date: 20250307
  Receipt Date: 20250311
  Transmission Date: 20250409
  Serious: Yes (Hospitalization)
  Sender: BIOVITRUM
  Company Number: US-BIOVITRUM-2025-US-002961

PATIENT
  Age: 68 Year
  Sex: Female

DRUGS (19)
  1. VONJO [Suspect]
     Active Substance: PACRITINIB
     Indication: Myelofibrosis
     Route: 048
     Dates: start: 20221205
  2. ACETAMINOPHEN ORAL [Concomitant]
     Indication: Product used for unknown indication
     Route: 048
  3. ALBUTEROL SULFATE [Concomitant]
     Active Substance: ALBUTEROL SULFATE
     Indication: Product used for unknown indication
  4. ATORVASTATIN CALCIUM ORAL [Concomitant]
     Indication: Product used for unknown indication
     Route: 048
  5. BENZONATATE ORAL [Concomitant]
     Indication: Product used for unknown indication
     Route: 048
  6. CALCIUM-VITAMIN D3 ORAL, [Concomitant]
     Indication: Product used for unknown indication
     Route: 048
  7. CETIRIZINE HCL ORAL [Concomitant]
     Indication: Product used for unknown indication
     Route: 048
  8. CYANOCOBALAMIN [Concomitant]
     Active Substance: CYANOCOBALAMIN
     Indication: Product used for unknown indication
  9. DIPHENHYDRAMINE HCL ORAL [Concomitant]
     Indication: Product used for unknown indication
     Route: 048
  10. FAMOTIDINE ORAL [Concomitant]
     Indication: Product used for unknown indication
     Route: 048
  11. FLUCONAZOLE [Concomitant]
     Active Substance: FLUCONAZOLE
     Indication: Product used for unknown indication
     Route: 048
  12. FOLIC ACID [Concomitant]
     Active Substance: FOLIC ACID
     Indication: Product used for unknown indication
     Route: 048
  13. HUMALOG [Concomitant]
     Active Substance: INSULIN LISPRO
     Indication: Product used for unknown indication
  14. LANTUS [Concomitant]
     Active Substance: INSULIN GLARGINE
     Indication: Product used for unknown indication
  15. LIDOCAINE EXTERNAL OINTMENT [Concomitant]
     Indication: Product used for unknown indication
  16. LOSARTAN POTASSIUM ORAL [Concomitant]
     Indication: Product used for unknown indication
     Route: 048
  17. LOTRISONE EXTERNAL CREAM [Concomitant]
     Indication: Product used for unknown indication
  18. NICODERM CQ [Concomitant]
     Active Substance: NICOTINE
     Indication: Product used for unknown indication
  19. SPIRIVA HANDIHALER INHALATION [Concomitant]
     Indication: Product used for unknown indication

REACTIONS (2)
  - Asthma [Unknown]
  - Renal disorder [Unknown]
